FAERS Safety Report 8313506-X (Version None)
Quarter: 2012Q2

REPORT INFORMATION
  Report Type: 
  Country: None (occurrence: None)
  Receive Date: 20120426
  Receipt Date: 20120419
  Transmission Date: 20120825
  Serious: Yes (Hospitalization)
  Sender: FDA-Public Use
  Company Number: DE-UCBSA-053458

PATIENT
  Age: 40 Year
  Sex: Female

DRUGS (2)
  1. KEPPRA [Concomitant]
  2. LEVETIRACETAM [Suspect]

REACTIONS (2)
  - CONVULSION [None]
  - PNEUMONIA [None]
